FAERS Safety Report 7451986-2 (Version None)
Quarter: 2011Q2

REPORT INFORMATION
  Report Type: 
  Country: None (occurrence: None)
  Receive Date: 20110502
  Receipt Date: 20110427
  Transmission Date: 20111010
  Serious: Yes (Other)
  Sender: FDA-Public Use
  Company Number: US-PFIZER INC-2011068190

PATIENT
  Sex: Male

DRUGS (8)
  1. GEODON [Suspect]
     Dosage: UNK,
  2. VENLAFAXINE [Concomitant]
     Dosage: UNK
  3. VENLAFAXINE HYDROCHLORIDE (EFFEXOR XR) [Suspect]
     Dosage: 225 MG, UNK
     Dates: start: 20110124
  4. VENLAFAXINE [Concomitant]
     Dosage: 100 MG, 4X/DAY
  5. SEROQUEL [Concomitant]
     Indication: SCHIZOAFFECTIVE DISORDER BIPOLAR TYPE
     Dosage: 100 MG, UNK
     Dates: start: 20110125
  6. SEROQUEL [Concomitant]
     Dosage: UNK
     Dates: start: 20110202
  7. SAPHRIS [Suspect]
     Indication: SCHIZOPHRENIA
     Dosage: 10 MG, 1X/DAY AT BEDTIME
     Route: 060
     Dates: start: 20110113, end: 20110203
  8. SAPHRIS [Suspect]
     Indication: SCHIZOAFFECTIVE DISORDER BIPOLAR TYPE
     Dosage: UNK
     Route: 060
     Dates: end: 20110203

REACTIONS (14)
  - FATIGUE [None]
  - BLOOD CHOLESTEROL INCREASED [None]
  - INSOMNIA [None]
  - TACHYPHRENIA [None]
  - PARANOIA [None]
  - MIGRAINE [None]
  - FEELING ABNORMAL [None]
  - VOMITING [None]
  - DIZZINESS [None]
  - DISORIENTATION [None]
  - WEIGHT INCREASED [None]
  - NAUSEA [None]
  - PSYCHOMOTOR HYPERACTIVITY [None]
  - INAPPROPRIATE SCHEDULE OF DRUG ADMINISTRATION [None]
